APPROVED DRUG PRODUCT: ESTERIFIED ESTROGENS
Active Ingredient: ESTROGENS, ESTERIFIED
Strength: 2.5MG
Dosage Form/Route: TABLET;ORAL
Application: A085907 | Product #001
Applicant: PRIVATE FORMULATIONS INC
Approved: Approved Prior to Jan 1, 1982 | RLD: No | RS: No | Type: DISCN